FAERS Safety Report 7122689-9 (Version None)
Quarter: 2010Q4

REPORT INFORMATION
  Report Type: 
  Country: None (occurrence: None)
  Receive Date: 20101103
  Receipt Date: 20100928
  Transmission Date: 20110411
  Serious: Yes (Other)
  Sender: FDA-Public Use
  Company Number: 2010SP052706

PATIENT
  Age: 32 Year
  Sex: Male

DRUGS (1)
  1. DESLORATADINE [Suspect]
     Indication: PRURITUS
     Dates: start: 20090101, end: 20100922

REACTIONS (1)
  - PLATELET COUNT DECREASED [None]
